FAERS Safety Report 6483352-0 (Version None)
Quarter: 2009Q4

REPORT INFORMATION
  Report Type: 
  Country: None (occurrence: None)
  Receive Date: 20091209
  Receipt Date: 20091113
  Transmission Date: 20100525
  Serious: No
  Sender: FDA-Public Use
  Company Number: US-BAYER-200916951BCC

PATIENT
  Age: 78 Year
  Sex: Female

DRUGS (4)
  1. NAPROXEN [Suspect]
     Indication: ARTHRALGIA
     Route: 048
     Dates: start: 20090908, end: 20090908
  2. VOLTAREN [Concomitant]
     Indication: ARTHRALGIA
     Route: 061
     Dates: start: 20090907
  3. TYLENOL (CAPLET) [Concomitant]
     Route: 065
  4. VICODIN [Concomitant]
     Route: 065

REACTIONS (1)
  - BLOOD PRESSURE INCREASED [None]
